FAERS Safety Report 14669016 (Version 2)
Quarter: 2018Q2

REPORT INFORMATION
  Report Type: Spontaneous
  Country: US (occurrence: US)
  Receive Date: 20180322
  Receipt Date: 20180412
  Transmission Date: 20180711
  Serious: No
  Sender: FDA-Public Use
  Company Number: US-JNJFOC-20180308252

PATIENT
  Age: 84 Year
  Sex: Female
  Weight: 81.65 kg

DRUGS (2)
  1. XARELTO [Suspect]
     Active Substance: RIVAROXABAN
     Indication: PULMONARY THROMBOSIS
     Route: 048
     Dates: start: 20171111
  2. XARELTO [Suspect]
     Active Substance: RIVAROXABAN
     Indication: THROMBOSIS
     Route: 048
     Dates: start: 20171111

REACTIONS (11)
  - Muscular weakness [Recovering/Resolving]
  - Lip swelling [Unknown]
  - Oral discomfort [Recovering/Resolving]
  - Hypoaesthesia [Recovering/Resolving]
  - Gait disturbance [Recovering/Resolving]
  - Bronchitis [Recovering/Resolving]
  - Asthenia [Recovering/Resolving]
  - Fatigue [Recovering/Resolving]
  - Chapped lips [Recovering/Resolving]
  - Dysgeusia [Recovering/Resolving]
  - Anal incontinence [Unknown]

NARRATIVE: CASE EVENT DATE: 20180219
